FAERS Safety Report 17848968 (Version 1)
Quarter: 2020Q2

REPORT INFORMATION
  Report Type: Spontaneous
  Country: CN (occurrence: CN)
  Receive Date: 20200602
  Receipt Date: 20200602
  Transmission Date: 20200714
  Serious: Yes (Other)
  Sender: FDA-Public Use
  Company Number: CN-CPL-001786

PATIENT
  Age: 46 Year
  Sex: Male

DRUGS (3)
  1. MEROPENEM. [Concomitant]
     Active Substance: MEROPENEM
  2. METRONIDAZOLE. [Suspect]
     Active Substance: METRONIDAZOLE
     Indication: AMOEBIC DYSENTERY
     Dosage: {1 MONTH (1.8 G/D, CUMULATIVE DOSE 61.2 G)
     Route: 048
  3. MESALAZINE [Concomitant]
     Active Substance: MESALAMINE

REACTIONS (3)
  - Reversible splenial lesion syndrome [Not Recovered/Not Resolved]
  - Neuropathy peripheral [Not Recovered/Not Resolved]
  - Toxic encephalopathy [Not Recovered/Not Resolved]
